FAERS Safety Report 8003844-2 (Version None)
Quarter: 2011Q4

REPORT INFORMATION
  Report Type: 
  Country: None (occurrence: None)
  Receive Date: 20111222
  Receipt Date: 20111219
  Transmission Date: 20120403
  Serious: Yes (Hospitalization, Disabling, Other)
  Sender: FDA-Public Use
  Company Number: GB-ELI_LILLY_AND_COMPANY-GB201112005033

PATIENT
  Age: 63 Year
  Sex: Male

DRUGS (3)
  1. PRASUGREL HYDROCHLORIDE [Suspect]
     Indication: MYOCARDIAL INFARCTION
     Dosage: 5 MG, QD
     Route: 048
     Dates: start: 20111018, end: 20111111
  2. RIFAMPICIN [Concomitant]
     Dosage: 300 MG, BID
     Route: 048
     Dates: end: 20111116
  3. FLUCLOXACILLIN [Concomitant]
     Indication: INFECTION
     Dosage: 4 MG, QID
     Route: 048
     Dates: end: 20111116

REACTIONS (3)
  - DIZZINESS [None]
  - ORTHOSTATIC HYPOTENSION [None]
  - AUTONOMIC FAILURE SYNDROME [None]
